FAERS Safety Report 26054582 (Version 1)
Quarter: 2025Q4

REPORT INFORMATION
  Report Type: Spontaneous
  Country: JP (occurrence: JP)
  Receive Date: 20251117
  Receipt Date: 20251117
  Transmission Date: 20260118
  Serious: Yes (Hospitalization, Other)
  Sender: MERCK SHARP & DOHME LLC
  Company Number: JP-MSD-2406JPN002275J

PATIENT
  Age: 7 Decade
  Sex: Female

DRUGS (4)
  1. KEYTRUDA [Suspect]
     Active Substance: PEMBROLIZUMAB
     Indication: Metastatic uterine cancer
     Dosage: DOSE DESCRIPTION : 200MG, Q3W
     Route: 041
     Dates: start: 20240313, end: 2024
  2. KEYTRUDA [Suspect]
     Active Substance: PEMBROLIZUMAB
     Indication: Metastatic uterine cancer
     Dosage: DOSE DESCRIPTION :200MG, Q3W; THIRD COURSE
     Route: 041
     Dates: start: 20240424, end: 20240424
  3. LENVIMA [Suspect]
     Active Substance: LENVATINIB
     Indication: Metastatic uterine cancer
     Dosage: DOSE DESCRIPTION : 20 MILLIGRAM, QD?DAILY DOSE : 20 MILLIGRAM?REGIMEN DOSE : 580  MILLIGRAM
     Route: 048
     Dates: start: 20240313, end: 20240410
  4. LENVIMA [Suspect]
     Active Substance: LENVATINIB
     Indication: Metastatic uterine cancer
     Dosage: DOSE DESCRIPTION : 20 MILLIGRAM, QD?DAILY DOSE : 20 MILLIGRAM?REGIMEN DOSE : 260  MILLIGRAM
     Route: 048
     Dates: start: 20240501, end: 20240513

REACTIONS (6)
  - Aortic perforation [Unknown]
  - Arterial haemorrhage [Unknown]
  - Gastrointestinal haemorrhage [Unknown]
  - Malignant neoplasm progression [Unknown]
  - Hypotension [Unknown]
  - Duodenal perforation [Recovering/Resolving]

NARRATIVE: CASE EVENT DATE: 20240101
